FAERS Safety Report 8030008-9 (Version None)
Quarter: 2012Q1

REPORT INFORMATION
  Report Type: 
  Country: None (occurrence: None)
  Receive Date: 20120109
  Receipt Date: 20120102
  Transmission Date: 20120608
  Serious: Yes (Hospitalization)
  Sender: FDA-Public Use
  Company Number: FR-BRISTOL-MYERS SQUIBB COMPANY-16329146

PATIENT
  Age: 83 Year
  Sex: Female

DRUGS (10)
  1. LERCANIDIPINE [Concomitant]
  2. VASTAREL [Concomitant]
  3. ACETAMINOPHEN [Concomitant]
  4. PRAXILENE [Concomitant]
  5. RABEPRAZOLE SODIUM [Concomitant]
  6. BONIVA [Concomitant]
  7. IRBESARTAN AND HYDROCHLOROTHIAZIDE [Suspect]
     Indication: HYPERTENSION
     Dates: end: 20091201
  8. IMOVANE [Concomitant]
  9. OSTRAM D3 [Concomitant]
  10. FENOFIBRATE [Concomitant]

REACTIONS (2)
  - HYPONATRAEMIA [None]
  - CONFUSIONAL STATE [None]
